FAERS Safety Report 21077656 (Version 6)
Quarter: 2023Q1

REPORT INFORMATION
  Report Type: Spontaneous
  Country: US (occurrence: US)
  Receive Date: 20220713
  Receipt Date: 20230303
  Transmission Date: 20230418
  Serious: No
  Sender: FDA-Public Use
  Company Number: US-PFIZER INC-202101169223

PATIENT
  Age: 77 Year
  Sex: Female
  Weight: 63.946 kg

DRUGS (1)
  1. PREMARIN [Suspect]
     Active Substance: ESTROGENS, CONJUGATED
     Indication: Hot flush
     Dosage: 1.25 MG, 1X/DAY

REACTIONS (1)
  - Hyperhidrosis [Unknown]
